FAERS Safety Report 13143796 (Version 2)
Quarter: 2017Q2

REPORT INFORMATION
  Report Type: Report from Study
  Country: CA (occurrence: CA)
  Receive Date: 20170124
  Receipt Date: 20170403
  Transmission Date: 20170830
  Serious: Yes (Other)
  Sender: FDA-Public Use
  Company Number: CA-JNJFOC-20170115369

PATIENT
  Age: 70 Year
  Sex: Male
  Weight: 68.6 kg

DRUGS (1)
  1. REMICADE [Suspect]
     Active Substance: INFLIXIMAB
     Indication: ANKYLOSING SPONDYLITIS
     Route: 042

REACTIONS (2)
  - Skin cancer [Not Recovered/Not Resolved]
  - Prostate infection [Recovered/Resolved]

NARRATIVE: CASE EVENT DATE: 201701
